FAERS Safety Report 4539907-3 (Version None)
Quarter: 2004Q4

REPORT INFORMATION
  Report Type: 
  Country: None (occurrence: None)
  Receive Date: 20041223
  Receipt Date: 20041124
  Transmission Date: 20050328
  Serious: Yes (Other)
  Sender: FDA-Public Use
  Company Number: 2004102131

PATIENT
  Sex: Male

DRUGS (2)
  1. ARTHROTEC [Suspect]
     Indication: NECK PAIN
     Dosage: 75 MG (75 MG, QD), ORAL
     Route: 048
     Dates: start: 20041122, end: 20041123
  2. THIOCOLCHICOSIDE (THIOCOLCHICOSIDE) [Suspect]
     Indication: NECK PAIN
     Dosage: 8 MG (4 MG, BID), ORAL
     Route: 048
     Dates: start: 20041122

REACTIONS (4)
  - ABDOMINAL PAIN [None]
  - DIARRHOEA [None]
  - DRUG INTERACTION [None]
  - RECTAL HAEMORRHAGE [None]
